FAERS Safety Report 7606088-9 (Version None)
Quarter: 2011Q3

REPORT INFORMATION
  Report Type: 
  Country: None (occurrence: None)
  Receive Date: 20110713
  Receipt Date: 20110705
  Transmission Date: 20111222
  Serious: Yes (Other)
  Sender: FDA-Public Use
  Company Number: US-ELI_LILLY_AND_COMPANY-US200906005630

PATIENT
  Sex: Female
  Weight: 131.52 kg

DRUGS (7)
  1. BYETTA [Suspect]
     Dosage: UNK, UNK
     Dates: start: 20071016, end: 20090905
  2. LEXAPRO [Concomitant]
     Indication: DEPRESSION
  3. CLONAZEPAM [Concomitant]
     Indication: CONVULSION
  4. CYMBALTA [Concomitant]
  5. TRAZODONE HCL [Concomitant]
     Indication: DEPRESSION
  6. ARIXTRA [Concomitant]
     Indication: CONVULSION
  7. TOPIRAMATE [Concomitant]
     Indication: CONVULSION

REACTIONS (5)
  - RENAL FAILURE ACUTE [None]
  - NEPHROLITHIASIS [None]
  - DIABETIC NEUROPATHY [None]
  - CHOLELITHIASIS [None]
  - PANCREATITIS ACUTE [None]
